FAERS Safety Report 6183775-3 (Version None)
Quarter: 2009Q2

REPORT INFORMATION
  Report Type: 
  Country: None (occurrence: None)
  Receive Date: 20090508
  Receipt Date: 20090317
  Transmission Date: 20091009
  Serious: No
  Sender: FDA-Public Use
  Company Number: A0773802A

PATIENT
  Age: 45 Year
  Sex: Female

DRUGS (3)
  1. ALTABAX [Suspect]
     Dosage: 1APP TWICE PER DAY
     Route: 061
     Dates: start: 20090301, end: 20090313
  2. ZITHROMAX [Concomitant]
  3. SYNTHROID [Concomitant]

REACTIONS (3)
  - CHEILITIS [None]
  - ORAL PAIN [None]
  - VASODILATATION [None]
